FAERS Safety Report 24857108 (Version 1)
Quarter: 2025Q1

REPORT INFORMATION
  Report Type: Spontaneous
  Country: BR (occurrence: BR)
  Receive Date: 20250117
  Receipt Date: 20250117
  Transmission Date: 20250409
  Serious: Yes (Hospitalization, Other)
  Sender: TORRENT PHARMA INC.
  Company Number: BR-TORRENT-00006352

PATIENT
  Age: 28 Year
  Sex: Female

DRUGS (1)
  1. ZOLPIDEM [Suspect]
     Active Substance: ZOLPIDEM TARTRATE
     Indication: Insomnia
     Route: 048

REACTIONS (18)
  - Drug abuse [Unknown]
  - Drug dependence [Unknown]
  - Toxicity to various agents [Unknown]
  - Fall [Unknown]
  - Amnesia [Unknown]
  - Disturbance in attention [Unknown]
  - Drug withdrawal syndrome [Unknown]
  - Drug tolerance [Unknown]
  - Insomnia [Unknown]
  - Social problem [Unknown]
  - Overdose [Unknown]
  - Seizure [Unknown]
  - Accident [Unknown]
  - Head injury [Unknown]
  - Educational problem [Unknown]
  - Tremor [Unknown]
  - Hyperhidrosis [Unknown]
  - Intentional product use issue [Unknown]
